FAERS Safety Report 6752778-X (Version None)
Quarter: 2010Q2

REPORT INFORMATION
  Report Type: 
  Country: None (occurrence: None)
  Receive Date: 20100602
  Receipt Date: 20100602
  Transmission Date: 20101027
  Serious: No
  Sender: FDA-Public Use
  Company Number: None

PATIENT
  Age: 54 Year
  Sex: Female
  Weight: 59.8748 kg

DRUGS (2)
  1. VALACYCLOVIR [Suspect]
     Indication: HERPES VIRUS INFECTION
     Dosage: 1 PILL A.M., P.M. PO
     Route: 048
     Dates: start: 20100513, end: 20100517
  2. VALACYCLOVIR [Suspect]
     Indication: PROPHYLAXIS
     Dosage: 1 PILL A.M., P.M. PO
     Route: 048
     Dates: start: 20100513, end: 20100517

REACTIONS (13)
  - ANXIETY [None]
  - BACK PAIN [None]
  - BALANCE DISORDER [None]
  - COORDINATION ABNORMAL [None]
  - DIARRHOEA [None]
  - DISTURBANCE IN ATTENTION [None]
  - FATIGUE [None]
  - HALLUCINATION [None]
  - OEDEMA PERIPHERAL [None]
  - PYREXIA [None]
  - RASH [None]
  - STOMATITIS [None]
  - VOMITING [None]
